FAERS Safety Report 25952109 (Version 2)
Quarter: 2025Q4

REPORT INFORMATION
  Report Type: Spontaneous
  Country: CA (occurrence: CA)
  Receive Date: 20251023
  Receipt Date: 20251113
  Transmission Date: 20260118
  Serious: Yes (Other)
  Sender: TEVA
  Company Number: CA-TEVA-VS-3383600

PATIENT
  Age: 56 Year
  Sex: Female

DRUGS (53)
  1. PROPRANOLOL [Suspect]
     Active Substance: PROPRANOLOL HYDROCHLORIDE
     Indication: Toxicity to various agents
     Route: 065
  2. PROPRANOLOL [Suspect]
     Active Substance: PROPRANOLOL HYDROCHLORIDE
     Indication: Toxicity to various agents
     Route: 065
  3. CYMBALTA [Suspect]
     Active Substance: DULOXETINE HYDROCHLORIDE
     Indication: Migraine
     Route: 065
  4. DULOXETINE [Suspect]
     Active Substance: DULOXETINE
     Indication: Migraine
     Route: 065
  5. AMITRIPTYLINE [Suspect]
     Active Substance: AMITRIPTYLINE
     Indication: Migraine
     Route: 065
  6. BOTULINUM TOXIN TYPE A [Concomitant]
     Active Substance: BOTULINUM TOXIN TYPE A
     Indication: Migraine
     Dosage: DOSE FORM:POWDER FOR SOLUTION
     Route: 030
  7. PERINDOPRIL [Suspect]
     Active Substance: PERINDOPRIL
     Indication: Toxicity to various agents
     Route: 065
  8. PERINDOPRIL [Suspect]
     Active Substance: PERINDOPRIL
     Indication: Toxicity to various agents
     Route: 065
  9. PERINDOPRIL [Suspect]
     Active Substance: PERINDOPRIL
     Indication: Toxicity to various agents
     Route: 065
  10. PERINDOPRIL [Suspect]
     Active Substance: PERINDOPRIL
     Indication: Toxicity to various agents
     Route: 065
  11. PERINDOPRIL [Suspect]
     Active Substance: PERINDOPRIL
     Indication: Toxicity to various agents
     Route: 065
  12. PERINDOPRIL [Suspect]
     Active Substance: PERINDOPRIL
     Indication: Toxicity to various agents
     Route: 065
  13. PERINDOPRIL [Suspect]
     Active Substance: PERINDOPRIL
     Indication: Toxicity to various agents
     Route: 065
  14. PERINDOPRIL [Suspect]
     Active Substance: PERINDOPRIL
     Indication: Toxicity to various agents
     Route: 065
  15. PERINDOPRIL [Suspect]
     Active Substance: PERINDOPRIL
     Indication: Toxicity to various agents
     Route: 065
  16. PERINDOPRIL [Suspect]
     Active Substance: PERINDOPRIL
     Indication: Toxicity to various agents
     Route: 065
  17. PERINDOPRIL [Suspect]
     Active Substance: PERINDOPRIL
     Indication: Toxicity to various agents
     Route: 065
  18. PERINDOPRIL [Suspect]
     Active Substance: PERINDOPRIL
     Indication: Toxicity to various agents
     Route: 065
  19. PERINDOPRIL [Suspect]
     Active Substance: PERINDOPRIL
     Indication: Toxicity to various agents
     Route: 065
  20. PERINDOPRIL [Suspect]
     Active Substance: PERINDOPRIL
     Indication: Toxicity to various agents
     Route: 065
  21. GABAPENTIN [Suspect]
     Active Substance: GABAPENTIN
     Indication: Migraine
     Route: 065
  22. GABAPENTIN [Suspect]
     Active Substance: GABAPENTIN
     Indication: Migraine
     Route: 065
  23. INDOMETHACIN [Suspect]
     Active Substance: INDOMETHACIN
     Indication: Migraine
     Route: 065
  24. PERINDOPRIL [Suspect]
     Active Substance: PERINDOPRIL
     Indication: Toxicity to various agents
     Dosage: PATIENT ROA;OPHTHALMIC
     Route: 065
  25. PERINDOPRIL [Suspect]
     Active Substance: PERINDOPRIL
     Indication: Toxicity to various agents
     Route: 065
  26. PERINDOPRIL [Suspect]
     Active Substance: PERINDOPRIL
     Indication: Toxicity to various agents
     Dosage: PATIENT ROA;OPHTHALMIC
     Route: 065
  27. PERINDOPRIL [Suspect]
     Active Substance: PERINDOPRIL
     Indication: Toxicity to various agents
     Dosage: PATIENT ROA;OPHTHALMIC
     Route: 065
  28. OXYCODONE [Suspect]
     Active Substance: OXYCODONE
     Indication: Migraine
     Route: 065
  29. ONDANSETRON [Suspect]
     Active Substance: ONDANSETRON
     Indication: Migraine
     Route: 065
  30. ONDANSETRON [Suspect]
     Active Substance: ONDANSETRON
     Indication: Migraine
     Route: 065
  31. ONDANSETRON [Suspect]
     Active Substance: ONDANSETRON
     Indication: Migraine
     Route: 065
  32. MIRTAZAPINE [Suspect]
     Active Substance: MIRTAZAPINE
     Indication: Migraine
     Route: 048
  33. MIRTAZAPINE [Suspect]
     Active Substance: MIRTAZAPINE
     Indication: Migraine
     Route: 065
  34. ERENUMAB-AOOE [Suspect]
     Active Substance: ERENUMAB-AOOE
     Indication: Migraine
     Route: 058
  35. ERENUMAB-AOOE [Suspect]
     Active Substance: ERENUMAB-AOOE
     Indication: Migraine
     Route: 058
  36. DOMPERIDONE MALEATE [Concomitant]
     Active Substance: DOMPERIDONE MALEATE
     Indication: Migraine
     Route: 048
  37. PROPRANOLOL [Suspect]
     Active Substance: PROPRANOLOL HYDROCHLORIDE
     Indication: Toxicity to various agents
     Route: 048
  38. PROPRANOLOL [Suspect]
     Active Substance: PROPRANOLOL HYDROCHLORIDE
     Indication: Toxicity to various agents
     Route: 065
  39. PROPRANOLOL [Suspect]
     Active Substance: PROPRANOLOL HYDROCHLORIDE
     Indication: Toxicity to various agents
     Route: 048
  40. PROPRANOLOL [Suspect]
     Active Substance: PROPRANOLOL HYDROCHLORIDE
     Indication: Toxicity to various agents
     Route: 065
  41. PROPRANOLOL [Suspect]
     Active Substance: PROPRANOLOL HYDROCHLORIDE
     Indication: Toxicity to various agents
     Route: 065
  42. PROPRANOLOL [Suspect]
     Active Substance: PROPRANOLOL HYDROCHLORIDE
     Indication: Toxicity to various agents
     Route: 065
  43. PROPRANOLOL [Suspect]
     Active Substance: PROPRANOLOL HYDROCHLORIDE
     Indication: Toxicity to various agents
     Route: 065
  44. PROPRANOLOL [Suspect]
     Active Substance: PROPRANOLOL HYDROCHLORIDE
     Indication: Toxicity to various agents
     Route: 065
  45. PROPRANOLOL [Suspect]
     Active Substance: PROPRANOLOL HYDROCHLORIDE
     Indication: Toxicity to various agents
     Route: 065
  46. PROPRANOLOL [Suspect]
     Active Substance: PROPRANOLOL HYDROCHLORIDE
     Indication: Toxicity to various agents
     Route: 065
  47. PROPRANOLOL [Suspect]
     Active Substance: PROPRANOLOL HYDROCHLORIDE
     Indication: Toxicity to various agents
     Route: 065
  48. PROPRANOLOL [Suspect]
     Active Substance: PROPRANOLOL HYDROCHLORIDE
     Indication: Toxicity to various agents
     Route: 065
  49. DIVALPROEX SODIUM [Concomitant]
     Active Substance: DIVALPROEX SODIUM
     Indication: Migraine
     Route: 065
  50. TOPIRAMATE [Suspect]
     Active Substance: TOPIRAMATE
     Indication: Migraine
     Route: 048
  51. TOPIRAMATE [Suspect]
     Active Substance: TOPIRAMATE
     Indication: Migraine
     Route: 065
  52. CANDESARTAN CILEXETIL [Suspect]
     Active Substance: CANDESARTAN CILEXETIL
     Indication: Migraine
     Route: 048
  53. CANDESARTAN CILEXETIL [Suspect]
     Active Substance: CANDESARTAN CILEXETIL
     Indication: Migraine
     Route: 048

REACTIONS (14)
  - Nephropathy toxic [Unknown]
  - Mental disorder [Unknown]
  - Electrocardiogram QT prolonged [Unknown]
  - Serotonin syndrome [Unknown]
  - Drug interaction [Unknown]
  - Drug ineffective [Unknown]
  - Contraindicated product administered [Unknown]
  - Drug ineffective for unapproved indication [Unknown]
  - Fall [Unknown]
  - Hypertension [Unknown]
  - Off label use [Unknown]
  - Drug intolerance [Unknown]
  - Depressed level of consciousness [Unknown]
  - Toxicity to various agents [Unknown]
